FAERS Safety Report 19971487 (Version 19)
Quarter: 2023Q1

REPORT INFORMATION
  Report Type: Report from Study
  Country: US (occurrence: US)
  Receive Date: 20211019
  Receipt Date: 20230125
  Transmission Date: 20230417
  Serious: Yes (Other)
  Sender: FDA-Public Use
  Company Number: US-GLAXOSMITHKLINE-US2021AMR171287

PATIENT

DRUGS (22)
  1. BELANTAMAB MAFODOTIN [Suspect]
     Active Substance: BELANTAMAB MAFODOTIN
     Indication: Product used for unknown indication
     Dosage: 100 MG
     Dates: start: 20210726, end: 20220914
  2. SYSTANE HYDRATION PF PRESERVATIVE FREE [Concomitant]
     Active Substance: POLYETHYLENE GLYCOL 400\PROPYLENE GLYCOL
     Indication: Product used for unknown indication
     Dosage: UNK, TID
  3. AMLODIPINE [Concomitant]
     Active Substance: AMLODIPINE BESYLATE
     Indication: Product used for unknown indication
     Dosage: 10 MG
  4. ASPIRIN [Concomitant]
     Active Substance: ASPIRIN
     Indication: Product used for unknown indication
     Dosage: 81 MG (DELAYED RELEASE)
  5. GENTEAL NIGHT-TIME PM [Concomitant]
     Active Substance: MINERAL OIL\PETROLATUM
     Indication: Product used for unknown indication
     Dosage: UNK (94%-3% 1 APPLICATION IN BOTH EYE)
     Dates: start: 20170607
  6. LANTUS SOLOSTAR [Concomitant]
     Active Substance: INSULIN GLARGINE
     Indication: Product used for unknown indication
     Dosage: 3 ML (100 UNIT/ML) INSULIN PEN
  7. LEVOFLOXACIN [Concomitant]
     Active Substance: LEVOFLOXACIN
     Indication: Product used for unknown indication
     Dosage: 750 MG
  8. LOSARTAN [Concomitant]
     Active Substance: LOSARTAN
     Indication: Product used for unknown indication
     Dosage: 25 MG
  9. NEXIUM [Concomitant]
     Active Substance: ESOMEPRAZOLE MAGNESIUM
     Indication: Product used for unknown indication
     Dosage: 20 MG
  10. NORVASC [Concomitant]
     Active Substance: AMLODIPINE BESYLATE
     Indication: Product used for unknown indication
     Dosage: 2.5 MG
  11. REFRESH PLUS [Concomitant]
     Active Substance: CARBOXYMETHYLCELLULOSE SODIUM
     Indication: Product used for unknown indication
     Dosage: 0.5 % (EYE DROPPERETTE)
  12. RESTASIS [Concomitant]
     Active Substance: CYCLOSPORINE
     Indication: Product used for unknown indication
     Dosage: 0.05 %, BID (EYE DROPPERETTE)
     Dates: start: 2017
  13. REVLIMID [Concomitant]
     Active Substance: LENALIDOMIDE
     Indication: Product used for unknown indication
     Dosage: 15 MG
  14. ERYTHROMYCIN [Concomitant]
     Active Substance: ERYTHROMYCIN
     Indication: Product used for unknown indication
     Dosage: UNK UNK, QID
  15. ATORVASTATIN [Concomitant]
     Active Substance: ATORVASTATIN
     Indication: Product used for unknown indication
     Dosage: 40 MG
  16. ERYTHROMYCIN [Concomitant]
     Active Substance: ERYTHROMYCIN
     Indication: Product used for unknown indication
     Dosage: UNK, 5 MG/GRAM, 1APPLICATION IN LEFT EYE AT NIGHTLY
     Dates: start: 20221005
  17. HYDROCHLOROTHIAZIDE [Concomitant]
     Active Substance: HYDROCHLOROTHIAZIDE
     Indication: Product used for unknown indication
     Dosage: 25 MG
  18. NOVOLOG [Concomitant]
     Active Substance: INSULIN ASPART
     Indication: Product used for unknown indication
     Dosage: UNK, 100 UNIT/ML
  19. OMEPRAZOLE [Concomitant]
     Active Substance: OMEPRAZOLE
     Indication: Product used for unknown indication
     Dosage: 20 MG
  20. POTASSIUM CHLORIDE [Concomitant]
     Active Substance: POTASSIUM CHLORIDE
     Indication: Product used for unknown indication
     Dosage: 10 MEQ
  21. SYNTHROID [Concomitant]
     Active Substance: LEVOTHYROXINE SODIUM
     Indication: Product used for unknown indication
     Dosage: 50 UG
  22. VALACYCLOVIR HYDROCHLORIDE [Concomitant]
     Active Substance: VALACYCLOVIR HYDROCHLORIDE
     Indication: Product used for unknown indication
     Dosage: 500 MG

REACTIONS (21)
  - Disease progression [Unknown]
  - Type 2 diabetes mellitus [Unknown]
  - Punctate keratitis [Unknown]
  - Retinal degeneration [Unknown]
  - Epiretinal membrane [Unknown]
  - Vitreous detachment [Unknown]
  - Bell^s palsy [Unknown]
  - Keratopathy [Not Recovered/Not Resolved]
  - Visual acuity reduced [Recovered/Resolved]
  - Maculopathy [Unknown]
  - Optic disc disorder [Unknown]
  - Vision blurred [Recovered/Resolved]
  - Iris disorder [Unknown]
  - Dry eye [Recovered/Resolved]
  - Foreign body sensation in eyes [Recovered/Resolved]
  - Diplopia [Recovered/Resolved]
  - Photophobia [Recovered/Resolved]
  - Night blindness [Recovered/Resolved]
  - Eye discharge [Unknown]
  - Keratitis [Unknown]
  - Eye disorder [Unknown]

NARRATIVE: CASE EVENT DATE: 20210923
